FAERS Safety Report 5458714-0 (Version None)
Quarter: 2007Q3

REPORT INFORMATION
  Report Type: 
  Country: None (occurrence: None)
  Receive Date: 20070919
  Receipt Date: 20070605
  Transmission Date: 20080115
  Serious: Yes (Hospitalization)
  Sender: FDA-Public Use
  Company Number: US-ASTRAZENECA-2007UW07981

PATIENT
  Age: 33 Year
  Sex: Male
  Weight: 90.9 kg

DRUGS (9)
  1. SEROQUEL [Suspect]
     Indication: DEPRESSION
     Dosage: 25 MG TO 150 MG DAILY
     Route: 048
     Dates: start: 20051214, end: 20060316
  2. SEROQUEL [Suspect]
     Route: 048
     Dates: start: 20060317, end: 20060518
  3. SEROQUEL [Suspect]
     Route: 048
     Dates: start: 20060811, end: 20060828
  4. WELLBUTRIN [Concomitant]
  5. LAMICTAL [Concomitant]
  6. XANAX [Concomitant]
  7. GLUCOTROL [Concomitant]
     Indication: DIABETES MELLITUS
     Route: 048
     Dates: start: 20060519
  8. LIPITOR [Concomitant]
     Indication: HYPERLIPIDAEMIA
     Route: 048
     Dates: start: 20060124, end: 20060307
  9. LOPID [Concomitant]
     Indication: HYPERLIPIDAEMIA
     Route: 048
     Dates: start: 20060117

REACTIONS (3)
  - HYPERTRIGLYCERIDAEMIA [None]
  - MUSCLE SPASMS [None]
  - PANCREATITIS [None]
